FAERS Safety Report 7212734-4 (Version None)
Quarter: 2011Q1

REPORT INFORMATION
  Report Type: 
  Country: None (occurrence: None)
  Receive Date: 20110106
  Receipt Date: 20110105
  Transmission Date: 20110831
  Serious: Yes (Hospitalization)
  Sender: FDA-Public Use
  Company Number: CH-JNJFOC-20101208149

PATIENT
  Age: 6 Year
  Sex: Male
  Weight: 24 kg

DRUGS (5)
  1. RISPERDAL [Suspect]
     Indication: ATTENTION DEFICIT/HYPERACTIVITY DISORDER
     Route: 048
  2. BENOCTEN [Suspect]
     Indication: SLEEP DISORDER
     Route: 048
  3. BEXIN [Suspect]
     Indication: COUGH
     Route: 048
  4. PARACETAMOL [Concomitant]
     Indication: PYREXIA
     Route: 048
  5. RITALIN LA [Interacting]
     Indication: ATTENTION DEFICIT/HYPERACTIVITY DISORDER
     Dosage: 1 DOSE OF 40 MG- HALF OF 40 MG-0 DOSE
     Route: 048

REACTIONS (7)
  - HALLUCINATION, VISUAL [None]
  - OFF LABEL USE [None]
  - TREMOR [None]
  - AGITATION [None]
  - DRUG INTERACTION [None]
  - SLEEP DISORDER [None]
  - BODY TEMPERATURE INCREASED [None]
